FAERS Safety Report 8082766-5 (Version None)
Quarter: 2012Q1

REPORT INFORMATION
  Report Type: 
  Country: None (occurrence: None)
  Receive Date: 20120127
  Receipt Date: 20110210
  Transmission Date: 20120608
  Serious: No
  Sender: FDA-Public Use
  Company Number: US-ABBOTT-11P-163-0704966-00

PATIENT
  Sex: Male
  Weight: 70.37 kg

DRUGS (3)
  1. MERCAPTOPURINE [Concomitant]
     Indication: PRODUCT USED FOR UNKNOWN INDICATION
  2. HUMIRA [Suspect]
     Indication: CROHN'S DISEASE
     Route: 058
     Dates: start: 20091229
  3. LORAZEPAM [Concomitant]
     Indication: PRODUCT USED FOR UNKNOWN INDICATION
     Dosage: NOT REPORTED

REACTIONS (7)
  - RASH [None]
  - PNEUMONIA [None]
  - FATIGUE [None]
  - MUSCLE SPASMS [None]
  - PULMONARY FIBROSIS [None]
  - DYSPNOEA [None]
  - HEPATIC ENZYME INCREASED [None]
